FAERS Safety Report 5423977-4 (Version None)
Quarter: 2007Q3

REPORT INFORMATION
  Report Type: 
  Country: None (occurrence: None)
  Receive Date: 20070727
  Receipt Date: 20060822
  Transmission Date: 20080115
  Serious: Yes (Other)
  Sender: FDA-Public Use
  Company Number: THYM-11034

PATIENT
  Age: 63 Year
  Sex: Male

DRUGS (1)
  1. THYMOGLOBULIN [Suspect]
     Indication: HEART TRANSPLANT REJECTION
     Dosage: 150 MG QD IV
     Route: 042
     Dates: start: 20060813, end: 20060814

REACTIONS (1)
  - THROMBOCYTOPENIA [None]
